FAERS Safety Report 4836766-6 (Version None)
Quarter: 2005Q4

REPORT INFORMATION
  Report Type: 
  Country: None (occurrence: None)
  Receive Date: 20051123
  Receipt Date: 20051117
  Transmission Date: 20060501
  Serious: Yes (Hospitalization)
  Sender: FDA-Public Use
  Company Number: US-MERCK-0511USA03063

PATIENT
  Age: 84 Year
  Sex: Male

DRUGS (4)
  1. DECADRON [Suspect]
     Route: 048
     Dates: start: 20050810, end: 20050908
  2. DECADRON [Suspect]
     Route: 048
     Dates: start: 20050914, end: 20050917
  3. DECADRON [Suspect]
     Route: 048
     Dates: end: 20050928
  4. THALOMID [Suspect]
     Indication: MULTIPLE MYELOMA
     Route: 048
     Dates: start: 20050810

REACTIONS (9)
  - ANAEMIA [None]
  - ANXIETY [None]
  - BLOOD CREATININE INCREASED [None]
  - CONFUSIONAL STATE [None]
  - DISORIENTATION [None]
  - DIZZINESS [None]
  - DRUG INTOLERANCE [None]
  - FEELING JITTERY [None]
  - SYNCOPE [None]
